FAERS Safety Report 9197374 (Version 1)
Quarter: 2013Q1

REPORT INFORMATION
  Report Type: Report from Study
  Country: DE (occurrence: DE)
  Receive Date: 20130328
  Receipt Date: 20130328
  Transmission Date: 20140127
  Serious: Yes (Death, Hospitalization)
  Sender: FDA-Public Use
  Company Number: DE-ROCHE-768749

PATIENT
  Age: 68 Year
  Sex: Male
  Weight: 62 kg

DRUGS (11)
  1. CAPECITABINE [Suspect]
     Indication: RECTAL CANCER
     Dosage: 825 MG/M2 BID D1-33 W/O WEEKENDS+OPTIONAL BOOST,
     Route: 048
  2. CAPECITABINE [Suspect]
     Dosage: LAST DOSE PRIOR TO SAE: 26 JAN 2011, FREQUENCY : PER MORNING.
     Route: 048
  3. ASS [Concomitant]
     Indication: ARRHYTHMIA
     Route: 048
  4. NITROLINGUAL [Concomitant]
     Indication: ANGINA PECTORIS
     Dosage: FREQUENCY: ON DEMAND
     Route: 048
  5. TROSPIUM CHLORIDE [Concomitant]
     Indication: CYSTITIS
     Route: 048
  6. NOVALGIN [Concomitant]
     Indication: PAIN
     Route: 048
  7. NOVALGIN [Concomitant]
     Dosage: DOSE: 30 DROPS
     Route: 048
     Dates: start: 20110326, end: 20110401
  8. CONCOR [Concomitant]
     Route: 048
     Dates: start: 20110303, end: 20110401
  9. RAMIPRIL [Concomitant]
     Route: 048
     Dates: start: 20110303, end: 20110401
  10. SIMVA [Concomitant]
     Route: 048
     Dates: start: 20110303, end: 20110401
  11. REMERGIL [Concomitant]
     Indication: ANXIETY
     Route: 048
     Dates: start: 20110303, end: 20110401

REACTIONS (3)
  - Pulmonary embolism [Fatal]
  - Coronary artery disease [Recovered/Resolved]
  - Angina pectoris [Recovered/Resolved]
